FAERS Safety Report 11592001 (Version 3)
Quarter: 2016Q1

REPORT INFORMATION
  Report Type: Spontaneous
  Country: IT (occurrence: IT)
  Receive Date: 20151005
  Receipt Date: 20160105
  Transmission Date: 20160525
  Serious: Yes (Hospitalization)
  Sender: FDA-Public Use
  Company Number: IT-ROCHE-1641231

PATIENT
  Age: 77 Year
  Sex: Male

DRUGS (5)
  1. NEBIVOLOL. [Concomitant]
     Active Substance: NEBIVOLOL
     Route: 048
  2. MABTHERA [Suspect]
     Active Substance: RITUXIMAB
     Indication: NON-HODGKIN^S LYMPHOMA
  3. LEVACT (ITALY) [Suspect]
     Active Substance: BENDAMUSTINE HYDROCHLORIDE
     Indication: B-CELL LYMPHOMA
     Dosage: 2.5 MG/ML - 5 X 100 MG GLASS VIAL
     Route: 042
     Dates: start: 20141213, end: 20150609
  4. MABTHERA [Suspect]
     Active Substance: RITUXIMAB
     Indication: B-CELL LYMPHOMA
     Dosage: TOATL CYCLE RECEIVED: 6?1 VIAL 500 MG 50 ML
     Route: 042
     Dates: start: 20141212, end: 20150607
  5. RAMIPRIL. [Concomitant]
     Active Substance: RAMIPRIL
     Route: 065

REACTIONS (1)
  - Metastatic malignant melanoma [Unknown]

NARRATIVE: CASE EVENT DATE: 20150713
